FAERS Safety Report 4971831-4 (Version None)
Quarter: 2006Q2

REPORT INFORMATION
  Report Type: 
  Country: None (occurrence: None)
  Receive Date: 20060412
  Receipt Date: 20060412
  Transmission Date: 20061013
  Serious: Yes (Other)
  Sender: FDA-Public Use
  Company Number: None

PATIENT
  Age: 63 Year
  Sex: Female

DRUGS (2)
  1. ATROVENT HFA [Suspect]
     Indication: CHRONIC OBSTRUCTIVE PULMONARY DISEASE
     Dosage: INHALE 3 PUFFS FOUR TIMES A DAY
     Route: 055
     Dates: start: 20060220
  2. ATROVENT HFA [Suspect]
     Indication: EMPHYSEMA
     Dosage: INHALE 3 PUFFS FOUR TIMES A DAY
     Route: 055
     Dates: start: 20060220

REACTIONS (1)
  - DYSGEUSIA [None]
